FAERS Safety Report 9691962 (Version 2)
Quarter: 2013Q4

REPORT INFORMATION
  Report Type: Report from Study
  Country: US (occurrence: US)
  Receive Date: 20131118
  Receipt Date: 20131206
  Transmission Date: 20140711
  Serious: Yes (Hospitalization)
  Sender: FDA-Public Use
  Company Number: US-ROCHE-1304033

PATIENT
  Age: 43 Year
  Sex: Male

DRUGS (20)
  1. XOLAIR [Suspect]
     Indication: ASTHMA
     Route: 058
  2. XOLAIR [Suspect]
     Route: 048
     Dates: start: 201206
  3. FEXOFENADINE HCL [Concomitant]
     Indication: HYPERSENSITIVITY
     Dosage: 1 TABLET DAILY PRN FOR ALLERGIES
     Route: 048
  4. FLUTICASONE PROPIONATE [Concomitant]
     Dosage: 50 MCG/ACT, USE 1-2 SPRAYS IN EACH NOSTRIL
     Route: 045
  5. GABAPENTIN [Concomitant]
     Route: 048
  6. COLACE [Concomitant]
     Dosage: ^TAKE 1 CAPSULE TWICE DAILY AS NEEDED.^
     Route: 048
  7. SUMATRIPTAN SUCCINATE [Concomitant]
     Indication: MIGRAINE
     Route: 048
  8. ALBUTEROL SULFATE [Concomitant]
     Dosage: USE 1 UNIT DOSE IN NEBULIZER EVERY 4H AS NEEDED (2.5MG/3ML)
     Route: 055
  9. FOLIC ACID [Concomitant]
     Route: 048
  10. COLCRYS [Concomitant]
     Dosage: ^TAKE 1 TABLET 2-3 TIMES A DAY DEPENDING ON PAIN^
     Route: 048
  11. ESCITALOPRAM OXALATE [Concomitant]
     Route: 048
  12. LORAZEPAM [Concomitant]
     Dosage: TAKE 1 TABLET TWICE DAILY AS NEEDED
     Route: 048
  13. IMIQUIMOD [Concomitant]
  14. CONDYLOX [Concomitant]
  15. FISH OIL [Concomitant]
     Route: 048
  16. CIALIS [Concomitant]
     Route: 048
  17. CLOTRIMAZOLE [Concomitant]
     Dosage: MOUTH/THROAT TROCHE
     Route: 065
  18. SINGULAIR [Concomitant]
     Indication: ASTHMA
  19. SYMBICORT [Concomitant]
     Indication: ASTHMA
  20. SPIRIVA [Concomitant]
     Indication: ASTHMA

REACTIONS (14)
  - Asthma [Unknown]
  - Middle insomnia [Unknown]
  - Dyspnoea [Unknown]
  - Red cell distribution width increased [Unknown]
  - Mean platelet volume increased [Unknown]
  - Monocyte count increased [Unknown]
  - Oxygen saturation increased [Unknown]
  - Blood bicarbonate decreased [Unknown]
  - Haemoglobin decreased [Unknown]
  - Methaemoglobinaemia [Unknown]
  - Blood pH increased [Unknown]
  - PO2 increased [Unknown]
  - PCO2 decreased [Unknown]
  - Local swelling [Recovered/Resolved]
